FAERS Safety Report 7475296-2 (Version None)
Quarter: 2011Q2

REPORT INFORMATION
  Report Type: 
  Country: None (occurrence: None)
  Receive Date: 20110505
  Receipt Date: 20110425
  Transmission Date: 20111010
  Serious: Yes (Hospitalization)
  Sender: FDA-Public Use
  Company Number: 1000020454

PATIENT
  Age: 42 Year
  Sex: Male

DRUGS (11)
  1. FENOFIBRATE [Suspect]
     Indication: DYSLIPIDAEMIA
  2. ASPIRIN [Suspect]
     Indication: DEEP VEIN THROMBOSIS
  3. DICLOFENAC SODIUM [Suspect]
     Indication: PAIN IN EXTREMITY
  4. PROPRANOLOL HYDROCHLORIDE [Suspect]
     Indication: SCHIZOPHRENIA
  5. PROPRANOLOL HYDROCHLORIDE [Suspect]
     Indication: DEPRESSION
  6. CITALOPRAM HYDROBROMIDE [Suspect]
     Indication: DEPRESSION
  7. CITALOPRAM HYDROBROMIDE [Suspect]
     Indication: SCHIZOPHRENIA
  8. ATORVASTATIN [Suspect]
     Indication: DYSLIPIDAEMIA
  9. QUETIAPINE FUMARATE [Suspect]
     Indication: DEPRESSION
  10. QUETIAPINE FUMARATE [Suspect]
     Indication: SCHIZOPHRENIA
  11. WARFARIN SODIUM [Suspect]
     Indication: DEEP VEIN THROMBOSIS

REACTIONS (18)
  - DRUG INTERACTION [None]
  - SPINAL HAEMATOMA [None]
  - VESSEL PUNCTURE SITE HAEMORRHAGE [None]
  - PROTHROMBIN TIME PROLONGED [None]
  - HYPOVOLAEMIC SHOCK [None]
  - SKIN HAEMORRHAGE [None]
  - SPINAL CORD HAEMORRHAGE [None]
  - BACK PAIN [None]
  - ARTHRALGIA [None]
  - MELAENA [None]
  - RADICULAR PAIN [None]
  - URINARY RETENTION [None]
  - PARAPARESIS [None]
  - SPINAL CORD COMPRESSION [None]
  - MUCOSAL HAEMORRHAGE [None]
  - LOSS OF BLADDER SENSATION [None]
  - MYALGIA [None]
  - ECCHYMOSIS [None]
